FAERS Safety Report 6016116-2 (Version None)
Quarter: 2008Q4

REPORT INFORMATION
  Report Type: 
  Country: None (occurrence: None)
  Receive Date: 20081222
  Receipt Date: 20081212
  Transmission Date: 20090506
  Serious: Yes (Other)
  Sender: FDA-Public Use
  Company Number: JP-ASTRAZENECA-2008AP09486

PATIENT
  Age: 81 Year
  Sex: Male

DRUGS (4)
  1. CASODEX [Suspect]
     Indication: PROSTATE CANCER
     Route: 048
     Dates: end: 20081205
  2. AVISHOT [Concomitant]
     Dosage: DOSE UNKNOWN
     Route: 048
  3. FERROMIA [Concomitant]
     Dosage: DOSE UNKNOWN
     Route: 048
  4. CYANOCOBALAMIN [Concomitant]
     Dosage: DOSE UNKNOWN
     Route: 065

REACTIONS (1)
  - INTRAOCULAR PRESSURE INCREASED [None]
